FAERS Safety Report 7000423-0 (Version None)
Quarter: 2010Q3

REPORT INFORMATION
  Report Type: 
  Country: None (occurrence: None)
  Receive Date: 20100920
  Receipt Date: 20100318
  Transmission Date: 20110219
  Serious: No
  Sender: FDA-Public Use
  Company Number: US-ASTRAZENECA-2010SE12072

PATIENT
  Sex: Female
  Weight: 74.4 kg

DRUGS (6)
  1. SEROQUEL [Suspect]
     Indication: INSOMNIA
     Route: 048
     Dates: start: 20100101
  2. SEROQUEL [Suspect]
     Route: 048
  3. PAIN PILLS [Concomitant]
  4. KLONOPIN [Concomitant]
  5. HRT [Concomitant]
  6. CALCIUM [Concomitant]

REACTIONS (2)
  - DYSGEUSIA [None]
  - WEIGHT INCREASED [None]
